FAERS Safety Report 8762749 (Version 3)
Quarter: 2013Q1

REPORT INFORMATION
  Report Type: Spontaneous
  Country: US (occurrence: US)
  Receive Date: 20120830
  Receipt Date: 20130120
  Transmission Date: 20140127
  Serious: No
  Sender: FDA-Public Use
  Company Number: US-009507513-1208USA008671

PATIENT
  Age: 22 Year
  Sex: Female
  Weight: 114.56 kg

DRUGS (5)
  1. NEXPLANON [Suspect]
     Indication: CONTRACEPTION
     Dosage: UNK
     Dates: start: 20120619
  2. WELLBUTRIN [Concomitant]
     Dosage: UNK
  3. IRON (UNSPECIFIED) [Concomitant]
     Dosage: UNK
  4. LABETALOL HYDROCHLORIDE [Concomitant]
     Dosage: UNK
  5. VITAMINS (UNSPECIFIED) [Concomitant]
     Dosage: UNK

REACTIONS (3)
  - Implant site pain [Unknown]
  - Device breakage [Unknown]
  - Medical device complication [Unknown]
